APPROVED DRUG PRODUCT: CYANOCOBALAMIN
Active Ingredient: CYANOCOBALAMIN
Strength: 0.5MG/SPRAY
Dosage Form/Route: SPRAY, METERED;NASAL
Application: A212458 | Product #001 | TE Code: AB
Applicant: PADAGIS ISRAEL PHARMACEUTICALS LTD
Approved: Sep 9, 2020 | RLD: No | RS: Yes | Type: RX